FAERS Safety Report 21022403 (Version 3)
Quarter: 2022Q3

REPORT INFORMATION
  Report Type: Report from Study
  Country: JP (occurrence: JP)
  Receive Date: 20220629
  Receipt Date: 20220708
  Transmission Date: 20221026
  Serious: Yes (Hospitalization, Other)
  Sender: FDA-Public Use
  Company Number: JP-BRISTOL-MYERS SQUIBB COMPANY-2022-063603

PATIENT
  Age: 81 Year
  Sex: Male
  Weight: 61 kg

DRUGS (7)
  1. CARBOPLATIN [Suspect]
     Active Substance: CARBOPLATIN
     Indication: Non-small cell lung cancer
     Route: 065
     Dates: start: 20220121, end: 20220121
  2. CARBOPLATIN [Suspect]
     Active Substance: CARBOPLATIN
     Route: 065
     Dates: start: 20220228, end: 20220228
  3. PACLITAXEL [Suspect]
     Active Substance: PACLITAXEL
     Indication: Non-small cell lung cancer
     Route: 065
     Dates: start: 20220121, end: 20220121
  4. PACLITAXEL [Suspect]
     Active Substance: PACLITAXEL
     Route: 065
     Dates: start: 20220228, end: 20220228
  5. METFORMIN HYDROCHLORIDE [Concomitant]
     Active Substance: METFORMIN HYDROCHLORIDE
     Indication: Product used for unknown indication
     Dosage: BD; TWICE PER DAY
     Route: 048
     Dates: start: 20220113, end: 20220610
  6. HEPARINOID [Concomitant]
     Indication: Adverse event
     Dosage: AS NEEDED
     Route: 061
     Dates: start: 20220517
  7. BETAMETHASONE VALERATE [Concomitant]
     Active Substance: BETAMETHASONE VALERATE
     Indication: Adverse event
     Dosage: BD; TWICE PER DAY
     Route: 061
     Dates: start: 20220517

REACTIONS (1)
  - Diabetes mellitus [Not Recovered/Not Resolved]

NARRATIVE: CASE EVENT DATE: 20220622
